FAERS Safety Report 4467260-2 (Version None)
Quarter: 2004Q4

REPORT INFORMATION
  Report Type: 
  Country: None (occurrence: None)
  Receive Date: 20041006
  Receipt Date: 20040929
  Transmission Date: 20050328
  Serious: Yes (Hospitalization)
  Sender: FDA-Public Use
  Company Number: FR-BRISTOL-MYERS SQUIBB COMPANY-12718797

PATIENT
  Sex: Female

DRUGS (1)
  1. ELISOR TABS 20 MG [Suspect]
     Route: 048

REACTIONS (3)
  - FALL [None]
  - MYOCARDIAL INFARCTION [None]
  - RHABDOMYOLYSIS [None]
